FAERS Safety Report 8337958-4 (Version None)
Quarter: 2012Q2

REPORT INFORMATION
  Report Type: 
  Country: None (occurrence: None)
  Receive Date: 20120504
  Receipt Date: 20120425
  Transmission Date: 20120825
  Serious: No
  Sender: FDA-Public Use
  Company Number: US-JNJFOC-20120412012

PATIENT
  Sex: Female
  Weight: 58.97 kg

DRUGS (4)
  1. FENTANYL-100 [Suspect]
     Indication: FIBROMYALGIA
     Route: 062
     Dates: end: 20090101
  2. DURAGESIC-100 [Suspect]
     Route: 062
     Dates: start: 20100101, end: 20110101
  3. DURAGESIC-100 [Suspect]
     Route: 062
     Dates: start: 20110101
  4. DURAGESIC-100 [Suspect]
     Indication: FIBROMYALGIA
     Route: 062
     Dates: start: 20090101, end: 20100101

REACTIONS (5)
  - DRUG INEFFECTIVE [None]
  - WRONG TECHNIQUE IN DRUG USAGE PROCESS [None]
  - MEMORY IMPAIRMENT [None]
  - HOT FLUSH [None]
  - PRODUCT QUALITY ISSUE [None]
